FAERS Safety Report 16654669 (Version 2)
Quarter: 2019Q3

REPORT INFORMATION
  Report Type: Spontaneous
  Country: JP (occurrence: JP)
  Receive Date: 20190801
  Receipt Date: 20190801
  Transmission Date: 20191004
  Serious: Yes (Other)
  Sender: FDA-Public Use
  Company Number: JP-ROCHE-2367396

PATIENT
  Age: 82 Year
  Sex: Male

DRUGS (1)
  1. AVASTIN [Suspect]
     Active Substance: BEVACIZUMAB
     Indication: LUNG ADENOCARCINOMA
     Route: 041
     Dates: start: 201808

REACTIONS (2)
  - Small intestinal perforation [Unknown]
  - Intestinal metastasis [Unknown]

NARRATIVE: CASE EVENT DATE: 201906
